FAERS Safety Report 12409079 (Version 1)
Quarter: 2016Q2

REPORT INFORMATION
  Report Type: Report from Study
  Country: MX (occurrence: MX)
  Receive Date: 20160526
  Receipt Date: 20160526
  Transmission Date: 20160815
  Serious: Yes (Death, Hospitalization, Other)
  Sender: FDA-Public Use
  Company Number: PHHY2016MX064566

PATIENT
  Age: 91 Year
  Sex: Male

DRUGS (5)
  1. EXELON PATCH [Suspect]
     Active Substance: RIVASTIGMINE
     Indication: CONFUSIONAL STATE
  2. EXELON PATCH [Suspect]
     Active Substance: RIVASTIGMINE
     Indication: HALLUCINATION
     Dosage: 27 MG / EXELON 15 CM2 PATCH (13.3 MG, QD)
     Route: 062
  3. MELOXICAM. [Concomitant]
     Active Substance: MELOXICAM
     Indication: BACK PAIN
     Dosage: TWICE A WEEK /EVERY TIME HE HAD PAIN
     Route: 048
  4. EXELON PATCH [Suspect]
     Active Substance: RIVASTIGMINE
     Indication: NERVOUS SYSTEM DISORDER
     Dosage: 18 MG / EXELON 10 CM2 PATCH (9.5 MG)
     Route: 062
  5. ASPIRIN PROTECT [Concomitant]
     Active Substance: ASPIRIN
     Indication: PRODUCT USED FOR UNKNOWN INDICATION
     Dosage: EVERY 2 DAYS (QOD)
     Route: 065

REACTIONS (10)
  - Mastication disorder [Unknown]
  - Off label use [Unknown]
  - Feeding disorder [Unknown]
  - Asthenia [Unknown]
  - Respiratory arrest [Fatal]
  - Mood altered [Unknown]
  - Dysphagia [Unknown]
  - Dementia Alzheimer^s type [Unknown]
  - Fluid intake reduced [Unknown]
  - Depression [Unknown]

NARRATIVE: CASE EVENT DATE: 20160418
